FAERS Safety Report 11047234 (Version 1)
Quarter: 2015Q2

REPORT INFORMATION
  Report Type: Spontaneous
  Country: IT (occurrence: IT)
  Receive Date: 20150420
  Receipt Date: 20150420
  Transmission Date: 20150821
  Serious: Yes (Hospitalization)
  Sender: FDA-Public Use
  Company Number: IT-NOVOPROD-445517

PATIENT
  Age: 90 Year
  Sex: Female

DRUGS (8)
  1. ESOMEPRAZOLO [Concomitant]
  2. KCL RETARD ZYMA [Concomitant]
  3. TRESIBA FLEXTOUCH U100 [Suspect]
     Active Substance: INSULIN DEGLUDEC
     Indication: DIABETES MELLITUS
     Dosage: 16 IU/DIE
     Route: 058
     Dates: start: 20150215, end: 20150402
  4. BISOPROLOLO [Suspect]
     Active Substance: BISOPROLOL FUMARATE
     Indication: PRODUCT USED FOR UNKNOWN INDICATION
     Dosage: 2.5 MG, QD
     Route: 048
     Dates: start: 20150215, end: 20150402
  5. LASIX [Concomitant]
     Active Substance: FUROSEMIDE
  6. CARDIRENE [Concomitant]
     Active Substance: ASPIRIN DL-LYSINE
  7. NOVORAPID [Suspect]
     Active Substance: INSULIN ASPART
     Indication: DIABETES MELLITUS
     Dosage: 6 IU/DIE
     Route: 058
     Dates: start: 20150215, end: 20150402
  8. RAMIPRIL. [Concomitant]
     Active Substance: RAMIPRIL

REACTIONS (4)
  - Bundle branch block right [Recovered/Resolved]
  - Hypoglycaemia [Recovered/Resolved]
  - Bundle branch block left [Recovered/Resolved]
  - Syncope [Recovered/Resolved]

NARRATIVE: CASE EVENT DATE: 20150402
